FAERS Safety Report 8782245 (Version 2)
Quarter: 2012Q4

REPORT INFORMATION
  Report Type: 
  Country: PT (occurrence: PT)
  Receive Date: 20120913
  Receipt Date: 20120919
  Transmission Date: 20130627
  Serious: Yes (Other)
  Sender: FDA-Public Use
  Company Number: PT-ROCHE-1125495

PATIENT
  Sex: Male

DRUGS (4)
  1. MABTHERA [Suspect]
     Indication: ALLERGIC GRANULOMATOUS ANGIITIS
     Route: 042
     Dates: start: 20110531, end: 20110621
  2. AZATHIOPRIN [Concomitant]
     Indication: IMMUNOSUPPRESSION
     Route: 048
     Dates: start: 20110401
  3. PREDNISOLON [Concomitant]
     Indication: IMMUNOSUPPRESSION
     Route: 048
     Dates: start: 20100101
  4. PREDNISOLON [Concomitant]
     Route: 048

REACTIONS (1)
  - Non-Hodgkin^s lymphoma [Recovered/Resolved]
